FAERS Safety Report 20493713 (Version 1)
Quarter: 2022Q1

REPORT INFORMATION
  Report Type: Spontaneous
  Country: US (occurrence: US)
  Receive Date: 20220221
  Receipt Date: 20220221
  Transmission Date: 20220423
  Serious: No
  Sender: FDA-Public Use
  Company Number: US-AMGEN-USASP2022028205

PATIENT
  Age: 84 Year
  Sex: Female

DRUGS (1)
  1. EVENITY [Suspect]
     Active Substance: ROMOSOZUMAB-AQQG
     Indication: Osteoporosis
     Dosage: UNK UNK, QMO
     Route: 065
     Dates: start: 2021

REACTIONS (2)
  - Toothache [Not Recovered/Not Resolved]
  - Pain in jaw [Not Recovered/Not Resolved]
